FAERS Safety Report 4395769-9 (Version None)
Quarter: 2004Q3

REPORT INFORMATION
  Report Type: 
  Country: None (occurrence: None)
  Receive Date: 20040708
  Receipt Date: 20040625
  Transmission Date: 20050211
  Serious: Yes (Hospitalization)
  Sender: FDA-Public Use
  Company Number: 163-20785-04060687

PATIENT
  Age: 61 Year
  Sex: Female

DRUGS (13)
  1. THALOMID [Suspect]
     Indication: METASTATIC MALIGNANT MELANOMA
     Dosage: SEE IMAGE
     Route: 048
     Dates: end: 20040519
  2. THALOMID [Suspect]
     Indication: METASTATIC MALIGNANT MELANOMA
     Dosage: SEE IMAGE
     Route: 048
     Dates: start: 20040405
  3. TEMODAR [Suspect]
     Indication: CHEMOTHERAPY
  4. CISPLATIN [Suspect]
     Indication: CHEMOTHERAPY
     Dosage: DAILY X 3
     Dates: start: 20040504, end: 20040506
  5. VINBLASTINE SULFATE [Suspect]
     Indication: CHEMOTHERAPY
     Dosage: DAILY X 3
     Dates: start: 20040504, end: 20040506
  6. AMBIEN [Concomitant]
  7. COX 2 INHIBITOR [Concomitant]
  8. DECADRON [Concomitant]
  9. DOC-Q-LACE (DOCUSATE) [Concomitant]
  10. PREMPRO 14/14 [Concomitant]
  11. PROTONIX [Concomitant]
  12. SENOKOT [Concomitant]
  13. TYLENOL W/ CODEINE NO. 3 [Concomitant]

REACTIONS (20)
  - ANAEMIA [None]
  - ATAXIA [None]
  - BLOOD POTASSIUM DECREASED [None]
  - DEHYDRATION [None]
  - DISEASE PROGRESSION [None]
  - DIZZINESS [None]
  - FALL [None]
  - GAIT DISTURBANCE [None]
  - GASTROINTESTINAL OBSTRUCTION [None]
  - HYPONATRAEMIA [None]
  - HYPOTENSION [None]
  - ILEUS [None]
  - INTESTINAL MASS [None]
  - MALNUTRITION [None]
  - NEUTROPHIL COUNT DECREASED [None]
  - NEUTROPHIL COUNT INCREASED [None]
  - PULMONARY HILUM MASS [None]
  - RETROPERITONEAL NEOPLASM [None]
  - WHITE BLOOD CELL COUNT DECREASED [None]
  - WHITE BLOOD CELL COUNT INCREASED [None]
